FAERS Safety Report 7340070-4 (Version None)
Quarter: 2011Q1

REPORT INFORMATION
  Report Type: 
  Country: None (occurrence: None)
  Receive Date: 20110309
  Receipt Date: 20110228
  Transmission Date: 20110831
  Serious: Yes (Other)
  Sender: FDA-Public Use
  Company Number: PHHY2011US13714

PATIENT
  Sex: Female

DRUGS (1)
  1. GILENYA [Suspect]
     Indication: MULTIPLE SCLEROSIS
     Dosage: 0.5 MG, QD
     Route: 048
     Dates: start: 20110215

REACTIONS (8)
  - DYSPNOEA [None]
  - DYSGEUSIA [None]
  - URTICARIA [None]
  - HYPOAESTHESIA ORAL [None]
  - CHEST DISCOMFORT [None]
  - VOMITING [None]
  - SENSORY DISTURBANCE [None]
  - DYSPHAGIA [None]
